FAERS Safety Report 6685016 (Version 3)
Quarter: 2012Q4

REPORT INFORMATION
  Report Type: Report from Study
  Country: FR (occurrence: FR)
  Receive Date: 20080627
  Receipt Date: 20121016
  Transmission Date: 20130627
  Serious: Yes (Hospitalization, Other)
  Sender: FDA-Public Use
  Company Number: FR-BRISTOL-MYERS SQUIBB COMPANY-14234991

PATIENT
  Age: 64 Year
  Sex: Female

DRUGS (6)
  1. ORENCIA FOR INJ 250 MG/VIAL [Suspect]
     Indication: RHEUMATOID ARTHRITIS
     Dosage: 8 infusion of orencia
     Route: 042
     Dates: start: 20071001, end: 20080609
  2. ORENCIA FOR INJ 250 MG/VIAL [Suspect]
     Indication: POLYARTHRITIS
     Dosage: 8 infusion of orencia
     Route: 042
     Dates: start: 20071001, end: 20080609
  3. ARAVA [Suspect]
     Indication: RHEUMATOID ARTHRITIS
     Route: 048
     Dates: start: 200803
  4. CORTANCYL [Suspect]
     Indication: RHEUMATOID ARTHRITIS
     Route: 048
  5. RITUXIMAB [Concomitant]
  6. BI-PROFENID [Concomitant]
     Route: 048

REACTIONS (3)
  - Urosepsis [Recovered/Resolved]
  - Immunoglobulins decreased [Recovered/Resolved]
  - Genitourinary tract infection [Unknown]
